FAERS Safety Report 24649451 (Version 2)
Quarter: 2025Q2

REPORT INFORMATION
  Report Type: Spontaneous
  Country: US (occurrence: US)
  Receive Date: 20241121
  Receipt Date: 20250516
  Transmission Date: 20250717
  Serious: No
  Sender: SANOFI AVENTIS
  Company Number: US-SA-2024SA337294

PATIENT
  Age: 61 Year
  Sex: Female

DRUGS (1)
  1. DUPIXENT [Suspect]
     Active Substance: DUPILUMAB
     Indication: Dermatitis atopic
     Dosage: 300 MG, QOW
     Route: 058
     Dates: start: 20240807

REACTIONS (4)
  - Skin disorder [Unknown]
  - Therapeutic response shortened [Unknown]
  - Pruritus [Unknown]
  - Arthralgia [Unknown]

NARRATIVE: CASE EVENT DATE: 20240914
